FAERS Safety Report 4892182-2 (Version None)
Quarter: 2006Q1

REPORT INFORMATION
  Report Type: 
  Country: None (occurrence: None)
  Receive Date: 20060123
  Receipt Date: 20060113
  Transmission Date: 20060701
  Serious: Yes (Death, Life-Threatening, Other)
  Sender: FDA-Public Use
  Company Number: 221129

PATIENT
  Age: 79 Year
  Sex: Female

DRUGS (1)
  1. ACTIVASE [Suspect]
     Indication: CEREBRAL INFARCTION
     Dosage: 40 MG, SINGLE, INTRAVENOUS
     Route: 042
     Dates: start: 20051005, end: 20051005

REACTIONS (2)
  - CARDIAC ARREST [None]
  - DYSPNOEA [None]
